FAERS Safety Report 15125047 (Version 2)
Quarter: 2018Q3

REPORT INFORMATION
  Report Type: Report from Study
  Country: US (occurrence: US)
  Receive Date: 20180710
  Receipt Date: 20180718
  Transmission Date: 20181010
  Serious: Yes (Other)
  Sender: FDA-Public Use
  Company Number: US-EMD SERONO-9034850

PATIENT
  Age: 40 Year
  Sex: Male

DRUGS (4)
  1. SEROSTIM [Suspect]
     Active Substance: SOMATROPIN
     Indication: HIV WASTING SYNDROME
     Route: 058
     Dates: start: 2002
  2. SEROSTIM [Suspect]
     Active Substance: SOMATROPIN
     Route: 058
     Dates: start: 201803
  3. SEROSTIM [Suspect]
     Active Substance: SOMATROPIN
     Dosage: TAKES BETWEEN 2.5 AND 3.5 UNITS
     Route: 058
     Dates: start: 201804
  4. GENVOYA [Suspect]
     Active Substance: COBICISTAT\ELVITEGRAVIR\EMTRICITABINE\TENOFOVIR ALAFENAMIDE FUMARATE
     Indication: HIV INFECTION
     Dates: start: 2008

REACTIONS (5)
  - Neuropathy peripheral [Not Recovered/Not Resolved]
  - Fatigue [Unknown]
  - Carpal tunnel syndrome [Recovering/Resolving]
  - Treatment noncompliance [Unknown]
  - Peripheral swelling [Not Recovered/Not Resolved]

NARRATIVE: CASE EVENT DATE: 2017
